FAERS Safety Report 9162972 (Version 1)
Quarter: 2012Q4

REPORT INFORMATION
  Report Type: 
  Country: US (occurrence: US)
  Receive Date: 20121219
  Receipt Date: 20121219
  Transmission Date: 20130627
  Serious: Yes (Hospitalization)
  Sender: FDA-Public Use
  Company Number: US-RB-047772-12

PATIENT
  Age: 40 Year
  Sex: Female

DRUGS (2)
  1. SUBOXONE FILM [Suspect]
     Indication: DRUG DEPENDENCE
     Dosage: Suboxone film; dosing details unknown
     Route: 065
  2. SUBOXONE TABLET [Suspect]
     Indication: DRUG DEPENDENCE
     Route: 060
     Dates: start: 201109, end: 201205

REACTIONS (3)
  - Nausea [Recovered/Resolved]
  - Uterine leiomyoma [Recovered/Resolved]
  - Escherichia infection [Recovered/Resolved]
